FAERS Safety Report 16369989 (Version 1)
Quarter: 2019Q2

REPORT INFORMATION
  Report Type: Spontaneous
  Country: US (occurrence: US)
  Receive Date: 20190530
  Receipt Date: 20190530
  Transmission Date: 20190711
  Serious: Yes (Other)
  Sender: FDA-Public Use
  Company Number: US-VIVIMED-2018SP004040

PATIENT

DRUGS (1)
  1. ZOLPIDEM [Suspect]
     Active Substance: ZOLPIDEM\ZOLPIDEM TARTRATE
     Indication: PRODUCT USED FOR UNKNOWN INDICATION
     Dosage: 15 MG USUAL BEDTIME DOSE, UNK
     Route: 065

REACTIONS (3)
  - Amnesia [Unknown]
  - Weight increased [Unknown]
  - Sleep-related eating disorder [Recovered/Resolved]
